FAERS Safety Report 17540441 (Version 2)
Quarter: 2020Q1

REPORT INFORMATION
  Report Type: Report from Study
  Country: US (occurrence: US)
  Receive Date: 20200313
  Receipt Date: 20200318
  Transmission Date: 20200409
  Serious: Yes (Other)
  Sender: FDA-Public Use
  Company Number: US-AMGEN-USASL2020024928

PATIENT
  Age: 67 Year
  Sex: Male

DRUGS (2)
  1. REPATHA [Suspect]
     Active Substance: EVOLOCUMAB
     Indication: DRUG INTOLERANCE
  2. REPATHA [Suspect]
     Active Substance: EVOLOCUMAB
     Indication: BLOOD CHOLESTEROL INCREASED
     Dosage: 140 MILLIGRAM, Q2WK
     Route: 065
     Dates: start: 202001, end: 20200208

REACTIONS (19)
  - Ear discomfort [Unknown]
  - Oropharyngeal pain [Recovering/Resolving]
  - Pharyngeal hypoaesthesia [Recovering/Resolving]
  - Dizziness [Recovered/Resolved]
  - Myalgia [Recovering/Resolving]
  - Choking [Recovering/Resolving]
  - Facial pain [Recovering/Resolving]
  - Back pain [Recovering/Resolving]
  - Hypoaesthesia [Recovering/Resolving]
  - Hypoaesthesia oral [Recovering/Resolving]
  - Dysphagia [Recovering/Resolving]
  - Retching [Recovering/Resolving]
  - Arthralgia [Recovering/Resolving]
  - Chest pain [Recovering/Resolving]
  - Musculoskeletal chest pain [Recovering/Resolving]
  - Headache [Recovering/Resolving]
  - Nausea [Recovering/Resolving]
  - Pain in extremity [Recovering/Resolving]
  - Neck pain [Recovering/Resolving]

NARRATIVE: CASE EVENT DATE: 2020
